FAERS Safety Report 5450143-9 (Version None)
Quarter: 2007Q3

REPORT INFORMATION
  Report Type: 
  Country: None (occurrence: None)
  Receive Date: 20070912
  Receipt Date: 20070907
  Transmission Date: 20080115
  Serious: Yes (Hospitalization)
  Sender: FDA-Public Use
  Company Number: B0484073A

PATIENT
  Age: 51 Year
  Sex: Female
  Weight: 49.1 kg

DRUGS (5)
  1. VALTREX [Suspect]
     Indication: HERPES ZOSTER
     Dosage: 1000MG THREE TIMES PER DAY
     Route: 048
     Dates: start: 20070727, end: 20070802
  2. AZULFIDINE EN-TABS [Suspect]
     Indication: RHEUMATOID ARTHRITIS
     Dosage: 500MG TWICE PER DAY
     Route: 048
     Dates: start: 20070630, end: 20070727
  3. ARASENA-A [Concomitant]
     Indication: HERPES ZOSTER
     Route: 062
     Dates: start: 20070723
  4. UNKNOWN DRUG [Concomitant]
     Indication: RHEUMATOID ARTHRITIS
     Dates: start: 20070630, end: 20070727
  5. METHOTREXATE [Concomitant]
     Dates: start: 20061110, end: 20061201

REACTIONS (3)
  - AGRANULOCYTOSIS [None]
  - DRUG ERUPTION [None]
  - RASH [None]
